FAERS Safety Report 10238219 (Version 1)
Quarter: 2014Q2

REPORT INFORMATION
  Report Type: Spontaneous
  Country: JP (occurrence: JP)
  Receive Date: 20140616
  Receipt Date: 20140616
  Transmission Date: 20141212
  Serious: Yes (Death, Other)
  Sender: FDA-Public Use
  Company Number: PHHY2014JP072758

PATIENT
  Age: 50 Year
  Sex: Female

DRUGS (5)
  1. ZOLEDRONATE [Suspect]
     Indication: BREAST CANCER
     Dosage: 4 MG, PER BODY, ONCE EVERY 3 WEEKS
  2. 5-FLUOROURACIL [Suspect]
     Indication: BREAST CANCER
     Dosage: 500 MG/M2, ON DAY 1 EVERY 3 WEEKS
  3. EPIRUBICIN [Suspect]
     Indication: BREAST CANCER
     Dosage: 75 MG/M2, ON DAY 1 EVERY 3 WEEKS
  4. CYCLOPHOSPHAMIDE [Suspect]
     Indication: BREAST CANCER
     Dosage: 500 MG/M2, ON DAY 1 EVERY 3 WEEKS
  5. CANDESARTAN CILEXETIL [Concomitant]
     Indication: HYPERTENSION
     Dosage: 8 MG, PER DAY
     Route: 048

REACTIONS (4)
  - Death [Fatal]
  - Breast cancer [Unknown]
  - Malignant neoplasm progression [Unknown]
  - Nausea [Unknown]
